FAERS Safety Report 6070444-3 (Version None)
Quarter: 2009Q1

REPORT INFORMATION
  Report Type: 
  Country: None (occurrence: None)
  Receive Date: 20090209
  Receipt Date: 20090130
  Transmission Date: 20090719
  Serious: Yes (Hospitalization)
  Sender: FDA-Public Use
  Company Number: US-AMGEN-US270281

PATIENT
  Sex: Female

DRUGS (7)
  1. PANITUMUMAB [Suspect]
     Indication: SQUAMOUS CELL CARCINOMA
     Route: 042
     Dates: start: 20071203
  2. CISPLATIN [Suspect]
     Route: 065
  3. DOCETAXEL [Suspect]
     Route: 065
  4. LYRICA [Concomitant]
     Route: 065
  5. SYNTHROID [Concomitant]
     Route: 065
  6. XANAX [Concomitant]
     Route: 065
  7. REGLAN [Concomitant]
     Route: 065

REACTIONS (1)
  - PNEUMONIA STAPHYLOCOCCAL [None]
